FAERS Safety Report 9286937 (Version 1)
Quarter: 2013Q2

REPORT INFORMATION
  Report Type: Spontaneous
  Country: GB (occurrence: None)
  Receive Date: 20130508
  Receipt Date: 20130508
  Transmission Date: 20140414
  Serious: Yes (Other)
  Sender: FDA-Public Use
  Company Number: AUR-APL-2013-03584

PATIENT
  Sex: Male
  Weight: 98 kg

DRUGS (5)
  1. PIOGLITAZONE (PIOGLITAZONE) [Suspect]
     Indication: TYPE 2 DIABETES MELLITUS
     Route: 048
     Dates: start: 2004, end: 2012
  2. EXENATIDE (EXENATIDE) [Concomitant]
  3. METFORMIN (METFORMIN) [Concomitant]
  4. RAMIPRIL (RAMIPRIL) [Concomitant]
  5. SIMVASTATIN (SIMVASTATIN) [Concomitant]

REACTIONS (2)
  - Bladder cancer [None]
  - Disease recurrence [None]
